FAERS Safety Report 24847168 (Version 1)
Quarter: 2025Q1

REPORT INFORMATION
  Report Type: Spontaneous
  Country: CN (occurrence: CN)
  Receive Date: 20250116
  Receipt Date: 20250116
  Transmission Date: 20250409
  Serious: Yes (Life-Threatening, Other)
  Sender: ROCHE
  Company Number: CN-ROCHE-10000179242

PATIENT
  Age: 33 Year
  Sex: Female
  Weight: 48 kg

DRUGS (1)
  1. HYALURONIDASE-ZZXF\PERTUZUMAB\TRASTUZUMAB [Suspect]
     Active Substance: HYALURONIDASE-ZZXF\PERTUZUMAB\TRASTUZUMAB
     Indication: Breast cancer
     Route: 058
     Dates: start: 20250104, end: 20250104

REACTIONS (7)
  - Hypersensitivity [Recovering/Resolving]
  - Pneumonia [Recovering/Resolving]
  - Headache [Unknown]
  - Cardiac failure [Unknown]
  - Dyspnoea [Unknown]
  - Arrhythmia [Unknown]
  - Bone pain [Unknown]

NARRATIVE: CASE EVENT DATE: 20250104
